FAERS Safety Report 25196659 (Version 2)
Quarter: 2025Q2

REPORT INFORMATION
  Report Type: Spontaneous
  Country: US (occurrence: US)
  Receive Date: 20250415
  Receipt Date: 20250424
  Transmission Date: 20250717
  Serious: Yes (Life-Threatening, Hospitalization)
  Sender: TEVA
  Company Number: US-TEVA-VS-3320168

PATIENT
  Age: 56 Year
  Sex: Male

DRUGS (10)
  1. PROPOFOL [Suspect]
     Active Substance: PROPOFOL
     Indication: Sedation
     Route: 065
  2. BACLOFEN [Interacting]
     Active Substance: BACLOFEN
     Indication: Product used for unknown indication
     Route: 065
  3. FOSPHENYTOIN [Interacting]
     Active Substance: FOSPHENYTOIN
     Indication: Seizure
     Route: 065
  4. VORTIOXETINE [Interacting]
     Active Substance: VORTIOXETINE
     Indication: Product used for unknown indication
     Route: 065
  5. PHENYTOIN [Interacting]
     Active Substance: PHENYTOIN
     Indication: Seizure
     Route: 065
  6. MIDAZOLAM [Interacting]
     Active Substance: MIDAZOLAM
     Indication: Sedation
     Route: 065
  7. LURASIDONE [Interacting]
     Active Substance: LURASIDONE
     Indication: Product used for unknown indication
     Route: 065
  8. TRAZODONE [Interacting]
     Active Substance: TRAZODONE HYDROCHLORIDE
     Indication: Product used for unknown indication
     Route: 065
  9. LAMOTRIGINE [Interacting]
     Active Substance: LAMOTRIGINE
     Indication: Product used for unknown indication
     Route: 065
  10. CARBIDOPA LEVODOPA [Interacting]
     Active Substance: CARBIDOPA\LEVODOPA
     Indication: Product used for unknown indication
     Route: 065

REACTIONS (3)
  - Serotonin syndrome [Recovered/Resolved]
  - Drug interaction [Unknown]
  - Neuroleptic malignant syndrome [Recovered/Resolved]
